FAERS Safety Report 6444874-1 (Version None)
Quarter: 2009Q4

REPORT INFORMATION
  Report Type: 
  Country: None (occurrence: None)
  Receive Date: 20091118
  Receipt Date: 20091111
  Transmission Date: 20100525
  Serious: Yes (Hospitalization)
  Sender: FDA-Public Use
  Company Number: GXKR2009CH12382

PATIENT
  Age: 63 Year
  Sex: Female

DRUGS (3)
  1. ALENDRONIC ACID (NGX) [Suspect]
     Indication: OSTEOPENIA
     Dosage: UNK
     Route: 065
  2. ESOMEPRAZOLE (NGX) [Interacting]
     Route: 065
  3. CALCIUM [Concomitant]
     Route: 048

REACTIONS (3)
  - DRUG INTERACTION [None]
  - FEMUR FRACTURE [None]
  - INTRAMEDULLARY ROD INSERTION [None]
